FAERS Safety Report 15400113 (Version 1)
Quarter: 2018Q4

REPORT INFORMATION
  Report Type: Spontaneous
  Country: US (occurrence: US)
  Receive Date: 20180919
  Receipt Date: 20180919
  Transmission Date: 20190204
  Serious: No
  Sender: FDA-Public Use
  Company Number: US-BION-007040

PATIENT
  Age: 72 Year
  Sex: Female

DRUGS (1)
  1. INDOOR/OUTDOOR ALLERGY RELIEF SOFTGELS [Suspect]
     Active Substance: CETIRIZINE HYDROCHLORIDE
     Indication: HYPERSENSITIVITY
     Dosage: THREE CONSECUTIVE DAYS BETWEEN 25-FEB-2018 TO 03-MAR-2018
     Route: 048

REACTIONS (4)
  - Self-medication [Not Recovered/Not Resolved]
  - Confusional state [Recovered/Resolved]
  - Malaise [Recovered/Resolved]
  - Somnolence [Recovered/Resolved]
